FAERS Safety Report 11167087 (Version 5)
Quarter: 2015Q4

REPORT INFORMATION
  Report Type: Spontaneous
  Country: HK (occurrence: HK)
  Receive Date: 20150605
  Receipt Date: 20151217
  Transmission Date: 20160304
  Serious: Yes (Hospitalization, Other)
  Sender: FDA-Public Use
  Company Number: HK-ALEXION PHARMACEUTICALS INC.-A201501972

PATIENT
  Age: 28 Year
  Sex: Female

DRUGS (1)
  1. SOLIRIS [Suspect]
     Active Substance: ECULIZUMAB
     Indication: PAROXYSMAL NOCTURNAL HAEMOGLOBINURIA
     Dosage: 600 MG, UNK
     Route: 042
     Dates: start: 20150123, end: 20150313

REACTIONS (19)
  - Paroxysmal nocturnal haemoglobinuria [Unknown]
  - Haemolysis [Not Recovered/Not Resolved]
  - Haemolysis [Not Recovered/Not Resolved]
  - Blood creatinine abnormal [Not Recovered/Not Resolved]
  - Cholecystitis [Recovered/Resolved]
  - Blood lactate dehydrogenase increased [Not Recovered/Not Resolved]
  - Bilirubin conjugated abnormal [Unknown]
  - Red blood cell count decreased [Unknown]
  - Inappropriate schedule of drug administration [Unknown]
  - Headache [Recovered/Resolved]
  - Blood bilirubin unconjugated increased [Not Recovered/Not Resolved]
  - Alanine aminotransferase abnormal [Unknown]
  - Haemoglobinuria [Not Recovered/Not Resolved]
  - Condition aggravated [Unknown]
  - Dysphagia [Recovered/Resolved]
  - Back pain [Not Recovered/Not Resolved]
  - Chromaturia [Not Recovered/Not Resolved]
  - Vomiting [Recovered/Resolved]
  - Blood bilirubin increased [Not Recovered/Not Resolved]

NARRATIVE: CASE EVENT DATE: 20150331
